FAERS Safety Report 19989020 (Version 2)
Quarter: 2021Q4

REPORT INFORMATION
  Report Type: Report from Study
  Country: US (occurrence: US)
  Receive Date: 20211024
  Receipt Date: 20211208
  Transmission Date: 20220303
  Serious: No
  Sender: FDA-Public Use
  Company Number: US-ABBVIE-21K-163-4125336-00

PATIENT
  Age: 68 Year
  Sex: Female

DRUGS (10)
  1. RINVOQ [Suspect]
     Active Substance: UPADACITINIB
     Indication: Rheumatoid arthritis
     Route: 048
     Dates: start: 20200918, end: 202009
  2. RINVOQ [Suspect]
     Active Substance: UPADACITINIB
     Route: 048
     Dates: start: 202010
  3. SULFASALAZINE [Suspect]
     Active Substance: SULFASALAZINE
     Indication: Rheumatoid arthritis
     Route: 048
     Dates: start: 2005, end: 202009
  4. PREDNISONE [Concomitant]
     Active Substance: PREDNISONE
     Indication: Rheumatoid arthritis
  5. HYDROCODONE [Concomitant]
     Active Substance: HYDROCODONE
     Indication: Rheumatoid arthritis
  6. HYDROCODONE [Concomitant]
     Active Substance: HYDROCODONE
     Indication: Osteoarthritis
  7. HYDROCODONE [Concomitant]
     Active Substance: HYDROCODONE
     Indication: Fibromyalgia
  8. ALEVE [Concomitant]
     Active Substance: NAPROXEN SODIUM
     Indication: Pain
  9. ALEVE [Concomitant]
     Active Substance: NAPROXEN SODIUM
     Indication: Musculoskeletal stiffness
  10. VITAMIN D [Concomitant]
     Active Substance: VITAMIN D NOS
     Indication: Supplementation therapy

REACTIONS (2)
  - Drug hypersensitivity [Unknown]
  - Headache [Recovered/Resolved]

NARRATIVE: CASE EVENT DATE: 20200901
